FAERS Safety Report 14438884 (Version 1)
Quarter: 2018Q1

REPORT INFORMATION
  Report Type: Report from Study
  Country: ES (occurrence: ES)
  Receive Date: 20180125
  Receipt Date: 20180125
  Transmission Date: 20180509
  Serious: Yes (Life-Threatening, Hospitalization)
  Sender: FDA-Public Use
  Company Number: ES-BAYER-2018-012383

PATIENT
  Age: 39 Year
  Sex: Male

DRUGS (1)
  1. NAPROXEN. [Suspect]
     Active Substance: NAPROXEN
     Dosage: UNK
     Route: 048

REACTIONS (1)
  - Peptic ulcer perforation [Recovered/Resolved]

NARRATIVE: CASE EVENT DATE: 20160415
